FAERS Safety Report 7413826-7 (Version None)
Quarter: 2011Q2

REPORT INFORMATION
  Report Type: 
  Country: None (occurrence: None)
  Receive Date: 20110413
  Receipt Date: 20110407
  Transmission Date: 20111010
  Serious: Yes (Hospitalization, Other)
  Sender: FDA-Public Use
  Company Number: US-RB-025427-11

PATIENT
  Sex: Female

DRUGS (2)
  1. SUBOXONE [Suspect]
     Route: 060
     Dates: start: 20110328, end: 20110328
  2. SUBOXONE [Suspect]
     Indication: DRUG DEPENDENCE
     Route: 060
     Dates: start: 20110329

REACTIONS (5)
  - AGITATION [None]
  - CHEST DISCOMFORT [None]
  - VIITH NERVE PARALYSIS [None]
  - RESTLESSNESS [None]
  - BLOOD POTASSIUM DECREASED [None]
